FAERS Safety Report 4784538-3 (Version None)
Quarter: 2005Q3

REPORT INFORMATION
  Report Type: 
  Country: None (occurrence: None)
  Receive Date: 20050930
  Receipt Date: 20050926
  Transmission Date: 20060218
  Serious: Yes (Other)
  Sender: FDA-Public Use
  Company Number: NL-GLAXOSMITHKLINE-B0395389A

PATIENT
  Age: 48 Year
  Sex: Female

DRUGS (1)
  1. PAROXETINE HCL [Suspect]
     Indication: ANXIETY DISORDER
     Dosage: 30MG PER DAY
     Route: 065
     Dates: start: 19910101

REACTIONS (6)
  - ARRHYTHMIA [None]
  - ARTHRALGIA [None]
  - BIPOLAR DISORDER [None]
  - FEELING ABNORMAL [None]
  - MANIA [None]
  - SUICIDE ATTEMPT [None]
